FAERS Safety Report 17556692 (Version 1)
Quarter: 2020Q1

REPORT INFORMATION
  Report Type: Spontaneous
  Country: US (occurrence: US)
  Receive Date: 20200311
  Receipt Date: 20200311
  Transmission Date: 20200409
  Serious: Yes (Hospitalization)
  Sender: FDA-Public Use
  Company Number: None

PATIENT
  Sex: Female
  Weight: 31.1 kg

DRUGS (5)
  1. CYTARABINE. [Suspect]
     Active Substance: CYTARABINE
     Dates: end: 20170517
  2. VINCRISTINE SULFATE. [Suspect]
     Active Substance: VINCRISTINE SULFATE
     Dates: end: 20170608
  3. DEXAMETHASONE. [Suspect]
     Active Substance: DEXAMETHASONE
     Dates: end: 20170614
  4. ONCASPAR [Suspect]
     Active Substance: PEGASPARGASE
     Dates: end: 20170525
  5. METHOTREXATE. [Suspect]
     Active Substance: METHOTREXATE
     Dates: end: 20170615

REACTIONS (5)
  - Periorbital cellulitis [None]
  - Mucormycosis [None]
  - Periorbital abscess [None]
  - Sinusitis [None]
  - Subdural abscess [None]

NARRATIVE: CASE EVENT DATE: 20170616
